FAERS Safety Report 9387193 (Version 1)
Quarter: 2013Q3

REPORT INFORMATION
  Report Type: Spontaneous
  Country: GB (occurrence: None)
  Receive Date: 20130702
  Receipt Date: 20130702
  Transmission Date: 20140515
  Serious: Yes (Other)
  Sender: FDA-Public Use
  Company Number: GER/UKI/13/0030245

PATIENT
  Age: 32 Year
  Sex: Female

DRUGS (1)
  1. FINASTERIDE (FINASTERIDE) [Suspect]
     Indication: POLYCYSTIC OVARIES

REACTIONS (2)
  - Breast cancer [None]
  - Off label use [None]
